FAERS Safety Report 5346554-2 (Version None)
Quarter: 2007Q2

REPORT INFORMATION
  Report Type: 
  Country: None (occurrence: None)
  Receive Date: 20070605
  Receipt Date: 20070522
  Transmission Date: 20071010
  Serious: Yes (Other)
  Sender: FDA-Public Use
  Company Number: US-AMGEN-US211052

PATIENT
  Sex: Male
  Weight: 109.4 kg

DRUGS (6)
  1. ENBREL [Suspect]
     Indication: RHEUMATOID ARTHRITIS
     Route: 058
     Dates: start: 20041001, end: 20070101
  2. METHOTREXATE SODIUM [Concomitant]
     Route: 048
     Dates: start: 20000101, end: 20070101
  3. FOLIC ACID [Concomitant]
     Route: 065
     Dates: start: 19850101
  4. ATENOLOL [Concomitant]
     Route: 065
     Dates: start: 20030101
  5. NEXIUM [Concomitant]
     Route: 065
     Dates: start: 20030101
  6. NABUMETONE [Concomitant]
     Route: 065
     Dates: start: 20030101

REACTIONS (5)
  - ALOPECIA [None]
  - CONSTIPATION [None]
  - DIARRHOEA [None]
  - NON-HODGKIN'S LYMPHOMA [None]
  - VIRAL INFECTION [None]
